FAERS Safety Report 8091318-2 (Version None)
Quarter: 2012Q1

REPORT INFORMATION
  Report Type: 
  Country: None (occurrence: None)
  Receive Date: 20120129
  Receipt Date: 20111017
  Transmission Date: 20120608
  Serious: No
  Sender: FDA-Public Use
  Company Number: US-ABBOTT-11P-163-0865496-00

PATIENT
  Age: 70 Year
  Sex: Female

DRUGS (14)
  1. ADVAIR DISKUS 100/50 [Concomitant]
     Indication: ASTHMA
     Dosage: 250/50 - TWICE DAILY
  2. METHOTREXATE [Concomitant]
     Indication: PRODUCT USED FOR UNKNOWN INDICATION
     Dosage: 2.5 MG - 6 TABLETS PER WEEK
  3. ADVAIR DISKUS 100/50 [Concomitant]
     Indication: HYPERSENSITIVITY
  4. ALBUTEROL [Concomitant]
     Indication: ASTHMA
     Dosage: NEBULIZER - AS NEEDED
  5. SINGULAIR [Concomitant]
     Indication: ASTHMA
     Dosage: 10 MG - IN THE EVENING
  6. SINGULAIR [Concomitant]
     Indication: HYPERSENSITIVITY
  7. MICARDIS [Concomitant]
     Indication: HYPERTENSION
  8. HUMIRA [Suspect]
     Indication: PSORIASIS
     Dates: start: 20090701
  9. ZYRTEC [Concomitant]
     Indication: HYPERSENSITIVITY
  10. ALBUTEROL [Concomitant]
     Indication: HYPERSENSITIVITY
  11. FOLIC ACID [Concomitant]
     Indication: PROPHYLAXIS
  12. FOLIC ACID [Concomitant]
     Indication: DRUG THERAPY
  13. SYNTHROID [Concomitant]
     Indication: HYPOTHYROIDISM
     Dosage: 15 MG - DAILY
  14. ZYRTEC [Concomitant]
     Indication: ASTHMA
     Dosage: OVER THE COUNTER, IN THE MORNING

REACTIONS (3)
  - PSORIASIS [None]
  - GAIT DISTURBANCE [None]
  - DEPRESSION [None]
